FAERS Safety Report 6836148-1 (Version None)
Quarter: 2010Q3

REPORT INFORMATION
  Report Type: 
  Country: None (occurrence: None)
  Receive Date: 20100713
  Receipt Date: 20100701
  Transmission Date: 20110219
  Serious: Yes (Other)
  Sender: FDA-Public Use
  Company Number: US-ROCHE-714037

PATIENT

DRUGS (4)
  1. BEVACIZUMAB [Suspect]
     Dosage: FREQUENCY: OVER 30-90 MINUTES ON DAYS 1 AND 15. CYCLE= 28 DAYS. COURSE NO: 1
     Route: 042
     Dates: start: 20100301
  2. BEVACIZUMAB [Suspect]
     Dosage: CYCLE 28 DAYS,FREQUENCY OVER 30-90MIN ON DAYS 1 AND 15,LAST DOSE PRIOR TO SAE 26 APRIL 2010,COURSE 3
     Route: 042
  3. TEMSIROLIMUS [Suspect]
     Dosage: FREQUENCY: ON DAYS 1, 8, 15, 22. CYCLE=28 DAYS. FIRST COURSE.
     Route: 042
     Dates: start: 20100301
  4. TEMSIROLIMUS [Suspect]
     Dosage: ON DAYS 1,8,15,22. LAST DOSE PRIOR TO SAE: 26 APRIL 2010, COURSE 3
     Route: 042

REACTIONS (1)
  - HYPERBILIRUBINAEMIA [None]
